FAERS Safety Report 12640720 (Version 1)
Quarter: 2016Q3

REPORT INFORMATION
  Report Type: Spontaneous
  Country: JP (occurrence: JP)
  Receive Date: 20160810
  Receipt Date: 20160810
  Transmission Date: 20161109
  Serious: Yes (Other)
  Sender: FDA-Public Use
  Company Number: JP-GUERBET LLC-1056162

PATIENT
  Age: 82 Year
  Sex: Male

DRUGS (2)
  1. AMLODIPINE [Concomitant]
     Active Substance: AMLODIPINE BESYLATE
  2. OPTIRAY [Suspect]
     Active Substance: IOVERSOL
     Dates: start: 20160316, end: 20160316

REACTIONS (4)
  - Nausea [Recovered/Resolved]
  - Pruritus [Recovered/Resolved]
  - Hypoaesthesia [Recovered/Resolved]
  - Blood pressure decreased [Recovered/Resolved]

NARRATIVE: CASE EVENT DATE: 20160316
